FAERS Safety Report 10103610 (Version 2)
Quarter: 2014Q2

REPORT INFORMATION
  Report Type: Report from Study
  Country: JP (occurrence: JP)
  Receive Date: 20140424
  Receipt Date: 20140424
  Transmission Date: 20141212
  Serious: Yes (Death, Life-Threatening, Disabling)
  Sender: FDA-Public Use
  Company Number: JP-BRISTOL-MYERS SQUIBB COMPANY-19876861

PATIENT
  Age: 63 Year
  Sex: Male

DRUGS (1)
  1. SPRYCEL [Suspect]
     Indication: CHRONIC MYELOID LEUKAEMIA
     Dosage: INTERRUPTED?RESTRTED 50 MG/D
     Route: 048
     Dates: start: 201006, end: 20131126

REACTIONS (6)
  - Death [Fatal]
  - Pleural effusion [Not Recovered/Not Resolved]
  - Infectious pleural effusion [Not Recovered/Not Resolved]
  - Pneumonia [Unknown]
  - Cardio-respiratory arrest [Unknown]
  - Hypoxic-ischaemic encephalopathy [Unknown]
